FAERS Safety Report 20540017 (Version 1)
Quarter: 2022Q1

REPORT INFORMATION
  Report Type: Report from Study
  Country: RU (occurrence: RU)
  Receive Date: 20220302
  Receipt Date: 20220302
  Transmission Date: 20220423
  Serious: Yes (Other)
  Sender: FDA-Public Use
  Company Number: RU-JNJFOC-20211131830

PATIENT
  Age: 46 Year
  Sex: Female
  Weight: 81 kg

DRUGS (2)
  1. ERDAFITINIB [Suspect]
     Active Substance: ERDAFITINIB
     Indication: Cholangiocarcinoma
     Dosage: TEMPERORY STOP FROM 29/OCT/2021 TO 12/NOV/2021
     Route: 065
     Dates: start: 20210603, end: 20211029
  2. ERDAFITINIB [Suspect]
     Active Substance: ERDAFITINIB
     Dosage: TEMPERORY STOP FROM 29/OCT/2021 TO 12/NOV/2021
     Route: 065
     Dates: start: 20211113

REACTIONS (5)
  - Stomatitis [Not Recovered/Not Resolved]
  - Skin disorder [Not Recovered/Not Resolved]
  - Nail discomfort [Not Recovered/Not Resolved]
  - Nail disorder [Not Recovered/Not Resolved]
  - Pain in extremity [Not Recovered/Not Resolved]

NARRATIVE: CASE EVENT DATE: 20210920
